FAERS Safety Report 22661362 (Version 1)
Quarter: 2023Q2

REPORT INFORMATION
  Report Type: Spontaneous
  Country: US (occurrence: US)
  Receive Date: 20230630
  Receipt Date: 20230630
  Transmission Date: 20230721
  Serious: Yes (Hospitalization)
  Sender: FDA-Public Use
  Company Number: US-AMNEAL PHARMACEUTICALS-2023-AMRX-02238

PATIENT
  Age: 57 Year
  Sex: Male

DRUGS (1)
  1. CARVEDILOL PHOSPHATE [Suspect]
     Active Substance: CARVEDILOL PHOSPHATE
     Indication: Cardiac failure
     Dosage: UNK
     Route: 065

REACTIONS (4)
  - Hypothermia [Recovering/Resolving]
  - Mental status changes [Recovering/Resolving]
  - Systemic inflammatory response syndrome [Unknown]
  - Proteus infection [Unknown]
